FAERS Safety Report 6124817-0 (Version None)
Quarter: 2009Q1

REPORT INFORMATION
  Report Type: 
  Country: None (occurrence: None)
  Receive Date: 20090319
  Receipt Date: 20090311
  Transmission Date: 20090719
  Serious: Yes (Hospitalization)
  Sender: FDA-Public Use
  Company Number: PHHO2009US03501

PATIENT
  Sex: Male
  Weight: 80 kg

DRUGS (4)
  1. ZOLEDRONATE T29581+SOLINF [Suspect]
     Indication: METASTASES TO BONE
     Dosage: 3.3 MG
     Route: 042
     Dates: start: 20090106
  2. ZOLEDRONATE T29581+SOLINF [Suspect]
     Indication: PROSTATE CANCER
  3. VITAMIN D [Concomitant]
  4. CALCIUM [Concomitant]

REACTIONS (4)
  - BLOOD CREATININE INCREASED [None]
  - HYPOTENSION [None]
  - URINARY TRACT INFECTION [None]
  - UROSEPSIS [None]
